FAERS Safety Report 7859711-8 (Version None)
Quarter: 2011Q4

REPORT INFORMATION
  Report Type: 
  Country: None (occurrence: None)
  Receive Date: 20111025
  Receipt Date: 20111010
  Transmission Date: 20120403
  Serious: Yes (Hospitalization)
  Sender: FDA-Public Use
  Company Number: 2011MA015004

PATIENT
  Age: 76 Year
  Sex: Female

DRUGS (2)
  1. VENLAFAXINE HYDROCHLORIDE [Suspect]
     Indication: DEPRESSION
     Dosage: PO
     Route: 048
  2. METHYLENE BLUE (METHYLTHIONINIUM CHLORIDE) [Suspect]
     Indication: PARATHYROIDECTOMY
     Dosage: IV
     Route: 042

REACTIONS (5)
  - PUPIL FIXED [None]
  - AGITATION [None]
  - POST PROCEDURAL COMPLICATION [None]
  - SEROTONIN SYNDROME [None]
  - COMA SCALE ABNORMAL [None]
